FAERS Safety Report 4668670-0 (Version None)
Quarter: 2005Q2

REPORT INFORMATION
  Report Type: 
  Country: None (occurrence: None)
  Receive Date: 20050518
  Receipt Date: 20050428
  Transmission Date: 20051028
  Serious: Yes (Death)
  Sender: FDA-Public Use
  Company Number: A0553285A

PATIENT
  Age: 19 Year
  Sex: Male
  Weight: 60.782 kg

DRUGS (1)
  1. PAXIL CR [Suspect]
     Indication: ANXIETY
     Dosage: 12.5 MG/ PER DAY/ ORAL
     Route: 048
     Dates: start: 20040914

REACTIONS (2)
  - COMPLETED SUICIDE [None]
  - INJURY ASPHYXIATION [None]
